FAERS Safety Report 9022580 (Version 1)
Quarter: 2013Q1

REPORT INFORMATION
  Report Type: Spontaneous
  Country: US (occurrence: US)
  Receive Date: 20130118
  Receipt Date: 20130118
  Transmission Date: 20140127
  Serious: No
  Sender: FDA-Public Use
  Company Number: US-GLAXOSMITHKLINE-A0989366A

PATIENT
  Age: 59 Year
  Sex: Male

DRUGS (2)
  1. PROMACTA [Suspect]
     Dosage: 25MG PER DAY
     Route: 048
  2. DIURETIC [Concomitant]

REACTIONS (1)
  - Blood creatinine increased [Unknown]
